FAERS Safety Report 5492785-0 (Version None)
Quarter: 2007Q4

REPORT INFORMATION
  Report Type: 
  Country: None (occurrence: None)
  Receive Date: 20071023
  Receipt Date: 20071012
  Transmission Date: 20080405
  Serious: Yes (Death)
  Sender: FDA-Public Use
  Company Number: GB-WYE-G00407607

PATIENT
  Sex: Male
  Weight: 36.8 kg

DRUGS (3)
  1. EFFEXOR XR [Suspect]
     Indication: DEPRESSION
     Dosage: 150 MG FREQUENCY UNKNOWN
     Route: 048
     Dates: start: 20051201, end: 20070427
  2. EFFEXOR XR [Suspect]
     Dosage: OVERDOSE (8.9 MCG/ML)
     Route: 048
     Dates: start: 20070427, end: 20070427
  3. OLANZAPINE [Concomitant]
     Indication: MAJOR DEPRESSION
     Dosage: 7.5 MG FREQUENCY UNKNOWN
     Route: 048
     Dates: start: 20030901, end: 20070427

REACTIONS (3)
  - ANTIDEPRESSANT DRUG LEVEL INCREASED [None]
  - COMPLETED SUICIDE [None]
  - INTENTIONAL OVERDOSE [None]
